FAERS Safety Report 20954407 (Version 2)
Quarter: 2022Q2

REPORT INFORMATION
  Report Type: Spontaneous
  Country: US (occurrence: None)
  Receive Date: 20220614
  Receipt Date: 20220615
  Transmission Date: 20220721
  Serious: No
  Sender: FDA-Public Use
  Company Number: US-MDD US Operations-MDD202108-001588

PATIENT
  Sex: Male

DRUGS (2)
  1. APOKYN [Suspect]
     Active Substance: APOMORPHINE HYDROCHLORIDE
     Indication: Product used for unknown indication
     Dates: start: 20200601
  2. LISINOPRIL [Concomitant]
     Active Substance: LISINOPRIL
     Indication: Hypotension
     Dosage: NOT PROVIDED

REACTIONS (3)
  - Blood sodium decreased [Unknown]
  - Pruritus [Unknown]
  - Hypotension [Unknown]
